FAERS Safety Report 9251848 (Version 1)
Quarter: 2013Q2

REPORT INFORMATION
  Report Type: Spontaneous
  Country: US (occurrence: US)
  Receive Date: 20130424
  Receipt Date: 20130424
  Transmission Date: 20140414
  Serious: No
  Sender: FDA-Public Use
  Company Number: US-BAYER-2013-051448

PATIENT
  Age: 65 Year
  Sex: Male
  Weight: 117.91 kg

DRUGS (2)
  1. ALEVE CAPLET [Suspect]
     Dosage: UNK
     Route: 048
     Dates: start: 201304
  2. BAYER ASPIRIN REGIMEN ADULT LOW STRENGTH [Concomitant]

REACTIONS (3)
  - Incorrect dose administered [None]
  - Drug ineffective [Not Recovered/Not Resolved]
  - Incorrect drug administration duration [None]
